FAERS Safety Report 7994178 (Version 4)
Quarter: 2013Q2

REPORT INFORMATION
  Report Type: Spontaneous
  Country: US (occurrence: US)
  Receive Date: 20110616
  Receipt Date: 20130507
  Transmission Date: 20140414
  Serious: Yes (Hospitalization, Other)
  Sender: FDA-Public Use
  Company Number: US-BAYER-2011-051074

PATIENT
  Age: 23 Year
  Sex: Female
  Weight: 66.67 kg

DRUGS (14)
  1. YAZ [Suspect]
     Indication: MENSTRUATION IRREGULAR
     Dosage: UNK
     Dates: start: 200911, end: 201001
  2. YASMIN [Suspect]
  3. IBUPROFEN [Concomitant]
     Dosage: UNK
     Route: 048
     Dates: start: 20091006
  4. METHYLPREDNISOLON [Concomitant]
     Dosage: UNK
     Route: 048
     Dates: start: 20091008
  5. HYDROXYZINE HYDROCHLORIDE [Concomitant]
     Dosage: UNK
     Route: 048
     Dates: start: 20091008
  6. AZITHROMYCIN [Concomitant]
     Dosage: UNK
     Dates: start: 20091017
  7. SARNA [Concomitant]
     Dosage: UNK
     Route: 061
     Dates: start: 20091112
  8. HYDROCORTISONE [Concomitant]
     Dosage: UNK
     Route: 061
     Dates: start: 20091112
  9. PSEUDOEPHEDRINE [Concomitant]
     Dosage: UNK
     Route: 048
     Dates: start: 20091112
  10. OXYMETAZOLINE [Concomitant]
     Dosage: UNK
     Route: 045
     Dates: start: 20091112
  11. LORATADINE [Concomitant]
     Dosage: UNK
     Route: 048
     Dates: start: 20091112
  12. VITAMIN K [Concomitant]
  13. PLASMA [Concomitant]
  14. BENADRYL [Concomitant]

REACTIONS (17)
  - Deep vein thrombosis [None]
  - Pulmonary embolism [None]
  - Injury [None]
  - Pain in extremity [None]
  - Anxiety [None]
  - Anhedonia [None]
  - Psychological trauma [None]
  - Fear [None]
  - Hypoaesthesia [None]
  - Abasia [None]
  - Gait disturbance [None]
  - Dizziness [None]
  - Ventricular extrasystoles [None]
  - Pulmonary function test decreased [None]
  - Abdominal pain [None]
  - Cholecystitis infective [None]
  - Pain [None]
